FAERS Safety Report 10597204 (Version 1)
Quarter: 2014Q4

REPORT INFORMATION
  Report Type: Spontaneous
  Country: JP (occurrence: JP)
  Receive Date: 20141121
  Receipt Date: 20141121
  Transmission Date: 20150529
  Serious: Yes (Death, Hospitalization)
  Sender: FDA-Public Use
  Company Number: JP-BRISTOL-MYERS SQUIBB COMPANY-21615596

PATIENT
  Age: 9 Decade
  Sex: Male

DRUGS (3)
  1. ELIQUIS [Suspect]
     Active Substance: APIXABAN
     Indication: CEREBROVASCULAR ACCIDENT PROPHYLAXIS
     Dosage: TABLET
     Route: 048
  2. UFT [Concomitant]
     Active Substance: TEGAFUR\URACIL
  3. ALLELOCK [Concomitant]
     Active Substance: OLOPATADINE HYDROCHLORIDE

REACTIONS (3)
  - Pneumonia [Unknown]
  - Myelodysplastic syndrome [Unknown]
  - Pulmonary haemorrhage [Fatal]

NARRATIVE: CASE EVENT DATE: 20141030
